FAERS Safety Report 9714551 (Version 1)
Quarter: 2013Q4

REPORT INFORMATION
  Report Type: Spontaneous
  Country: JP (occurrence: JP)
  Receive Date: 20131126
  Receipt Date: 20131126
  Transmission Date: 20140711
  Serious: Yes (Hospitalization)
  Sender: FDA-Public Use
  Company Number: JP-009507513-1311JPN011088

PATIENT
  Sex: Female

DRUGS (1)
  1. FOSAMAC TABLETS 35MG [Suspect]
     Indication: RHEUMATIC DISORDER
     Dosage: DAILY DOSAGE UNKNOWN
     Route: 048
     Dates: start: 2008

REACTIONS (4)
  - Spinal compression fracture [Unknown]
  - Tooth extraction [Unknown]
  - Bleeding time prolonged [Recovered/Resolved]
  - Off label use [Unknown]
